FAERS Safety Report 9871603 (Version 1)
Quarter: 2014Q1

REPORT INFORMATION
  Report Type: Spontaneous
  Country: US (occurrence: US)
  Receive Date: 20140205
  Receipt Date: 20140205
  Transmission Date: 20141002
  Serious: No
  Sender: FDA-Public Use
  Company Number: US-VIVUS-2013V1000603

PATIENT
  Age: 41 Year
  Sex: Female
  Weight: 122.13 kg

DRUGS (14)
  1. QSYMIA 7.5MG/46MG [Suspect]
     Indication: WEIGHT DECREASED
     Route: 048
     Dates: start: 201307
  2. QSYMIA 3.75MG/23MG [Suspect]
     Indication: WEIGHT DECREASED
     Route: 048
     Dates: start: 201307, end: 201307
  3. LEXAPRO [Concomitant]
     Indication: DEPRESSION
     Route: 048
     Dates: start: 2009
  4. SYNTHROID [Concomitant]
     Indication: HYPOTHYROIDISM
     Route: 048
     Dates: start: 2010
  5. METOPROLOL [Concomitant]
     Indication: HYPERTENSION
     Route: 048
     Dates: start: 2010
  6. DYMISTA [Concomitant]
     Indication: SEASONAL ALLERGY
     Dosage: 137-50 MCG
     Dates: start: 20130703
  7. DULERA [Concomitant]
     Indication: ASTHMA
     Dosage: 100-5 MCG
     Dates: start: 20130703
  8. LIPITOR [Concomitant]
     Indication: DYSLIPIDAEMIA
     Route: 048
     Dates: start: 20130703
  9. ALBUTEROL [Concomitant]
     Indication: ASTHMA
     Dates: start: 2011
  10. WELLBUTRIN [Concomitant]
     Indication: DEPRESSION
     Route: 048
     Dates: start: 201104
  11. SEASONIQUE [Concomitant]
     Indication: ORAL CONTRACEPTION
     Dosage: 0.15/0.03 MG
     Route: 048
     Dates: start: 201102
  12. PATADAY [Concomitant]
     Indication: SEASONAL ALLERGY
     Dosage: STARTED A COUPLE OF YEARS AGO
     Route: 031
  13. IBUPROFEN [Concomitant]
     Indication: ARTHRALGIA
     Dosage: 400-600 MG
     Route: 048
     Dates: start: 2008
  14. MULTIVITAMIN [Concomitant]
     Indication: MEDICAL DIET
     Route: 048

REACTIONS (1)
  - Metrorrhagia [Not Recovered/Not Resolved]
